FAERS Safety Report 9570219 (Version 4)
Quarter: 2013Q4

REPORT INFORMATION
  Report Type: Spontaneous
  Country: US (occurrence: US)
  Receive Date: 20130930
  Receipt Date: 20131223
  Transmission Date: 20140711
  Serious: Yes (Other)
  Sender: FDA-Public Use
  Company Number: US-AMGEN-USASP2013064892

PATIENT
  Age: 53 Year
  Sex: Female
  Weight: 66.67 kg

DRUGS (10)
  1. ENBREL [Suspect]
     Indication: RHEUMATOID ARTHRITIS
     Dosage: 50 MG, QWK
     Route: 058
     Dates: start: 20130828
  2. ZOCOR [Concomitant]
     Dosage: 20 MG, QD
  3. PRILOSEC                           /00661201/ [Concomitant]
     Dosage: 20 MG, QD
  4. XANAX [Concomitant]
     Dosage: 0.50 MG, AS NECESSARY
  5. ADDERALL [Concomitant]
     Dosage: 10 MG, QD
  6. FLEXERIL                           /00428402/ [Concomitant]
     Dosage: 10 MG, TID
     Route: 048
  7. FOLIC ACID [Concomitant]
     Dosage: 1 MG, QD
     Route: 048
  8. MOBIC [Concomitant]
     Dosage: 15 MG, QD
  9. METHOTREXATE [Concomitant]
     Dosage: 2.5 MG TAB 7, QWK
     Route: 048
  10. VICODIN [Concomitant]
     Dosage: UNK

REACTIONS (20)
  - Intervertebral disc degeneration [Unknown]
  - Joint stiffness [Recovered/Resolved]
  - Hot flush [Not Recovered/Not Resolved]
  - Pain [Not Recovered/Not Resolved]
  - Neck pain [Recovered/Resolved]
  - Back pain [Recovered/Resolved]
  - Musculoskeletal pain [Recovered/Resolved]
  - Osteoporosis [Unknown]
  - Arthritis [Unknown]
  - Osteoarthritis [Unknown]
  - Fibromyalgia [Unknown]
  - Injection site extravasation [Recovered/Resolved]
  - Sinusitis [Recovered/Resolved]
  - Injection site bruising [Not Recovered/Not Resolved]
  - Injection site erythema [Not Recovered/Not Resolved]
  - Injection site warmth [Not Recovered/Not Resolved]
  - Injection site urticaria [Not Recovered/Not Resolved]
  - Injection site pain [Not Recovered/Not Resolved]
  - Injection site pruritus [Not Recovered/Not Resolved]
  - Injection site swelling [Not Recovered/Not Resolved]
